FAERS Safety Report 10650709 (Version 1)
Quarter: 2014Q4

REPORT INFORMATION
  Report Type: Spontaneous
  Country: US (occurrence: US)
  Receive Date: 20141214
  Receipt Date: 20141214
  Transmission Date: 20150529
  Serious: No
  Sender: FDA-Public Use
  Company Number: US-BAUSCH-SYM-2014-22664

PATIENT
  Sex: Male

DRUGS (5)
  1. XENAZINE [Suspect]
     Active Substance: TETRABENAZINE
     Route: 048
     Dates: start: 201406
  2. XENAZINE [Suspect]
     Active Substance: TETRABENAZINE
     Dosage: 25MG IN THE MORNING AND 12.5MG IN THE EVENING
     Route: 048
     Dates: start: 201406
  3. XENAZINE [Suspect]
     Active Substance: TETRABENAZINE
     Route: 048
     Dates: start: 201406
  4. XENAZINE [Suspect]
     Active Substance: TETRABENAZINE
     Indication: PARKINSON^S DISEASE
     Route: 048
     Dates: start: 20140602
  5. XENAZINE [Suspect]
     Active Substance: TETRABENAZINE
     Route: 048
     Dates: start: 201406, end: 201406

REACTIONS (12)
  - Hunger [Recovered/Resolved]
  - Off label use [Recovered/Resolved]
  - Confusional state [Recovered/Resolved]
  - Aggression [Recovered/Resolved]
  - Eye movement disorder [Recovered/Resolved]
  - Decreased interest [Recovered/Resolved]
  - Fatigue [Recovered/Resolved]
  - Irritability [Recovered/Resolved]
  - Disturbance in attention [Recovered/Resolved]
  - Hypersomnia [Recovered/Resolved]
  - Anger [Recovered/Resolved]
  - Feeling abnormal [Recovered/Resolved]

NARRATIVE: CASE EVENT DATE: 201406
